FAERS Safety Report 4347741-2 (Version None)
Quarter: 2004Q2

REPORT INFORMATION
  Report Type: 
  Country: None (occurrence: None)
  Receive Date: 20040422
  Receipt Date: 20040406
  Transmission Date: 20050107
  Serious: Yes (Congenital Anomaly, Other)
  Sender: FDA-Public Use
  Company Number: US-SHR-04-023646

PATIENT
  Age: 1 Day
  Sex: Male

DRUGS (1)
  1. MIRENA [Suspect]

REACTIONS (4)
  - CONGENITAL ANOMALY [None]
  - DEVELOPMENTAL DELAY [None]
  - MATERNAL DRUGS AFFECTING FOETUS [None]
  - PREMATURE BABY [None]
